FAERS Safety Report 10595114 (Version 1)
Quarter: 2014Q4

REPORT INFORMATION
  Report Type: Spontaneous
  Country: US (occurrence: None)
  Receive Date: 20141119
  Receipt Date: 20141119
  Transmission Date: 20150529
  Serious: Yes (Hospitalization)
  Sender: FDA-Public Use
  Company Number: None

PATIENT
  Age: 48 Year
  Sex: Female
  Weight: 56.6 kg

DRUGS (2)
  1. ETOPOSIDE (VP-16) [Suspect]
     Active Substance: ETOPOSIDE
     Dates: end: 20141013
  2. CISPLATIN. [Suspect]
     Active Substance: CISPLATIN
     Dates: end: 20141009

REACTIONS (4)
  - Neutropenia [None]
  - Dyspnoea [None]
  - Pyrexia [None]
  - Chest pain [None]

NARRATIVE: CASE EVENT DATE: 20141025
